FAERS Safety Report 7512926-0 (Version None)
Quarter: 2011Q2

REPORT INFORMATION
  Report Type: 
  Country: None (occurrence: None)
  Receive Date: 20110531
  Receipt Date: 20101124
  Transmission Date: 20111010
  Serious: No
  Sender: FDA-Public Use
  Company Number: US-NOVEN-ALL1-2010-06173

PATIENT
  Sex: Male
  Weight: 20.862 kg

DRUGS (3)
  1. DAYTRANA [Suspect]
     Dosage: 10 MG, 1X/DAY:QD
     Route: 062
     Dates: start: 20090901, end: 20100901
  2. DAYTRANA [Suspect]
     Dosage: 20 MG, 1X/DAY:QD
     Route: 062
     Dates: start: 20100901
  3. CLONIDINE [Concomitant]
     Dosage: 0.1 MG, 3X/DAY:TID
     Route: 048

REACTIONS (4)
  - APPLICATION SITE PAIN [None]
  - APPLICATION SITE BLEEDING [None]
  - PRODUCT QUALITY ISSUE [None]
  - DRUG ADMINISTERED AT INAPPROPRIATE SITE [None]
